FAERS Safety Report 14712810 (Version 1)
Quarter: 2018Q2

REPORT INFORMATION
  Report Type: Spontaneous
  Country: FR (occurrence: FR)
  Receive Date: 20180404
  Receipt Date: 20180404
  Transmission Date: 20180711
  Serious: Yes (Other)
  Sender: FDA-Public Use
  Company Number: FR-MERCK KGAA-2045068

PATIENT
  Age: 57 Year
  Sex: Female

DRUGS (1)
  1. NOVOTHYROX [Suspect]
     Active Substance: LEVOTHYROXINE SODIUM
     Indication: PRODUCT USED FOR UNKNOWN INDICATION

REACTIONS (31)
  - Loss of personal independence in daily activities [None]
  - Cognitive disorder [None]
  - Apathy [None]
  - Dizziness [None]
  - Hallucination, visual [None]
  - Feeling drunk [None]
  - Balance disorder [None]
  - Musculoskeletal pain [None]
  - Anxiety [None]
  - Aggression [None]
  - Nausea [None]
  - Amnesia [None]
  - Malaise [None]
  - Blood thyroid stimulating hormone increased [None]
  - Personal relationship issue [None]
  - Pain in extremity [None]
  - Tachycardia [None]
  - Hypokinesia [None]
  - Hypothyroidism [None]
  - Hyperhidrosis [None]
  - Rhinorrhoea [None]
  - Fatigue [None]
  - Facial pain [None]
  - Tremor [None]
  - Headache [None]
  - Confusional state [None]
  - Presyncope [None]
  - Depressed level of consciousness [None]
  - Endolymphatic hydrops [None]
  - Mood swings [None]
  - Vomiting [None]

NARRATIVE: CASE EVENT DATE: 20170902
